FAERS Safety Report 5874639-0 (Version None)
Quarter: 2008Q3

REPORT INFORMATION
  Report Type: 
  Country: None (occurrence: None)
  Receive Date: 20080908
  Receipt Date: 20080908
  Transmission Date: 20090109
  Serious: Yes (Hospitalization)
  Sender: FDA-Public Use
  Company Number: None

PATIENT
  Sex: Female
  Weight: 76.4 kg

DRUGS (5)
  1. GAMMAGARD [Suspect]
     Indication: HYPOGAMMAGLOBULINAEMIA
     Dosage: 30GM EVERY 3 WEEKS IV
     Route: 042
     Dates: start: 20080901
  2. GAMMAGARD [Suspect]
     Dates: start: 20080901
  3. DILAUDID [Concomitant]
  4. BENADRYL [Concomitant]
  5. BACTRIM DS [Concomitant]

REACTIONS (5)
  - BACTERAEMIA [None]
  - BODY TEMPERATURE INCREASED [None]
  - INFUSION RELATED REACTION [None]
  - PHARMACEUTICAL PRODUCT COMPLAINT [None]
  - THERAPEUTIC PRODUCT CONTAMINATION [None]
